FAERS Safety Report 4301923-4 (Version None)
Quarter: 2004Q1

REPORT INFORMATION
  Report Type: 
  Country: None (occurrence: None)
  Receive Date: 20040220
  Receipt Date: 20040213
  Transmission Date: 20041129
  Serious: Yes (Hospitalization)
  Sender: FDA-Public Use
  Company Number: GB-JNJFOC-20040202805

PATIENT
  Age: 70 Year
  Sex: Female

DRUGS (5)
  1. REMICADE [Suspect]
     Indication: RHEUMATOID ARTHRITIS
     Dosage: 300 MG, INTRAVENOUS
     Route: 042
     Dates: start: 20020214
  2. METHOTREXATE [Concomitant]
  3. PREDNISOLONE [Concomitant]
  4. GLICLAZIDE (GLICLAZIDE) [Concomitant]
  5. PIOGLITAZONE HCL [Concomitant]

REACTIONS (1)
  - KNEE ARTHROPLASTY [None]
